FAERS Safety Report 7437002-7 (Version None)
Quarter: 2011Q2

REPORT INFORMATION
  Report Type: 
  Country: None (occurrence: None)
  Receive Date: 20110426
  Receipt Date: 20110419
  Transmission Date: 20111010
  Serious: Yes (Hospitalization, Other)
  Sender: FDA-Public Use
  Company Number: HU-AMGEN-HUNSP2011012826

PATIENT
  Age: 51 Year
  Sex: Male
  Weight: 99 kg

DRUGS (2)
  1. VECTIBIX [Suspect]
     Indication: PRODUCT USED FOR UNKNOWN INDICATION
     Dosage: 6 MG, Q2WK
     Dates: start: 20101110, end: 20110202
  2. METFORMIN [Concomitant]

REACTIONS (5)
  - ACNE [None]
  - SKIN REACTION [None]
  - GANGRENE [None]
  - DISEASE PROGRESSION [None]
  - PYREXIA [None]
